FAERS Safety Report 15810012 (Version 1)
Quarter: 2019Q1

REPORT INFORMATION
  Report Type: Spontaneous
  Country: US (occurrence: US)
  Receive Date: 20190111
  Receipt Date: 20190111
  Transmission Date: 20190417
  Serious: Yes (Other)
  Sender: FDA-Public Use
  Company Number: US-ROCHE-2122984

PATIENT
  Age: 68 Year
  Sex: Male
  Weight: 79.9 kg

DRUGS (5)
  1. OMEPRAZOLE. [Concomitant]
     Active Substance: OMEPRAZOLE
     Dosage: ONGOING: UNKNOWN
     Route: 048
     Dates: start: 20180425
  2. ALLOPURINOL. [Concomitant]
     Active Substance: ALLOPURINOL
     Dosage: ONGOING: UNKNOWN
     Route: 048
     Dates: start: 20180425
  3. CLOPIDOGREL [Concomitant]
     Active Substance: CLOPIDOGREL BISULFATE
     Dosage: ONGOING: UNKNOWN
     Route: 048
     Dates: start: 20180425
  4. RITUXAN [Suspect]
     Active Substance: RITUXIMAB
     Indication: DIFFUSE LARGE B-CELL LYMPHOMA
     Dosage: ONGOING: UNKNOWN
     Route: 042
     Dates: start: 20180426
  5. PREDNISONE. [Concomitant]
     Active Substance: PREDNISONE
     Dosage: ONGOING: UNKNOWN
     Route: 048
     Dates: start: 20180425

REACTIONS (1)
  - Neutropenia [Unknown]

NARRATIVE: CASE EVENT DATE: 20180426
